FAERS Safety Report 5902039-3 (Version None)
Quarter: 2008Q3

REPORT INFORMATION
  Report Type: 
  Country: None (occurrence: None)
  Receive Date: 20080929
  Receipt Date: 20080917
  Transmission Date: 20090109
  Serious: Yes (Death, Other)
  Sender: FDA-Public Use
  Company Number: JP-PFIZER INC-2008076707

PATIENT
  Age: 55 Year
  Sex: Female

DRUGS (8)
  1. SOLU-MEDROL [Suspect]
     Indication: STEVENS-JOHNSON SYNDROME
     Route: 050
     Dates: start: 20060601
  2. ALL OTHER THERAPEUTIC PRODUCTS [Concomitant]
     Route: 048
     Dates: start: 20060601
  3. BUFFERIN [Concomitant]
     Route: 048
     Dates: start: 20060601
  4. PL [Concomitant]
     Route: 048
     Dates: start: 20060601
  5. HUSCODE [Concomitant]
     Route: 048
     Dates: start: 20060601
  6. AVELOX [Concomitant]
     Route: 048
     Dates: start: 20060601
  7. PANIMYCIN [Concomitant]
     Route: 047
     Dates: start: 20060601
  8. ALPINYL [Concomitant]
     Indication: STEVENS-JOHNSON SYNDROME
     Route: 054
     Dates: start: 20060601

REACTIONS (3)
  - BLOOD BILIRUBIN INCREASED [None]
  - LIVER DISORDER [None]
  - TRANSAMINASES INCREASED [None]
